FAERS Safety Report 8854062 (Version 1)
Quarter: 2012Q4

REPORT INFORMATION
  Report Type: Spontaneous
  Country: US (occurrence: None)
  Receive Date: 20121019
  Receipt Date: 20121019
  Transmission Date: 20130627
  Serious: Yes (Life-Threatening)
  Sender: FDA-Public Use
  Company Number: None

PATIENT
  Age: 54 Year
  Sex: Female
  Weight: 80 kg

DRUGS (1)
  1. ORLISTAT [Suspect]
     Indication: OBESITY
     Dosage: 60mg AC po
     Route: 048

REACTIONS (2)
  - Liver disorder [None]
  - Liver transplant [None]
